FAERS Safety Report 15767200 (Version 2)
Quarter: 2019Q1

REPORT INFORMATION
  Report Type: Spontaneous
  Country: JP (occurrence: JP)
  Receive Date: 20181227
  Receipt Date: 20190130
  Transmission Date: 20190417
  Serious: Yes (Other)
  Sender: FDA-Public Use
  Company Number: JP-BRISTOL-MYERS SQUIBB COMPANY-BMS-2018-122022

PATIENT
  Age: 77 Year
  Sex: Female

DRUGS (2)
  1. YERVOY [Suspect]
     Active Substance: IPILIMUMAB
     Indication: MALIGNANT MELANOMA
     Dosage: 3 MG/KG /DAY
     Route: 041
     Dates: start: 20180828, end: 20180928
  2. OPDIVO [Suspect]
     Active Substance: NIVOLUMAB
     Indication: MALIGNANT MELANOMA
     Dosage: 80 MG /DAY
     Route: 041
     Dates: start: 20180828, end: 20180928

REACTIONS (4)
  - Colitis [Recovering/Resolving]
  - Oesophagitis [Unknown]
  - Duodenal ulcer [Unknown]
  - Hyperthyroidism [Unknown]
